FAERS Safety Report 9823226 (Version 1)
Quarter: 2014Q1

REPORT INFORMATION
  Report Type: Spontaneous
  Country: US (occurrence: US)
  Receive Date: 20140116
  Receipt Date: 20140116
  Transmission Date: 20141002
  Serious: No
  Sender: FDA-Public Use
  Company Number: US-PURDUE-USA-2013-0107818

PATIENT
  Sex: Female

DRUGS (2)
  1. DILAUDID INJECTION [Suspect]
     Indication: BURNS THIRD DEGREE
     Route: 042
  2. MORPHINE SULFATE (SIMILAR TO NDA 19-516) [Suspect]
     Indication: BURNS THIRD DEGREE

REACTIONS (1)
  - Inadequate analgesia [Unknown]
